FAERS Safety Report 19431945 (Version 2)
Quarter: 2021Q2

REPORT INFORMATION
  Report Type: Spontaneous
  Country: JP (occurrence: JP)
  Receive Date: 20210617
  Receipt Date: 20210625
  Transmission Date: 20210717
  Serious: Yes (Other)
  Sender: FDA-Public Use
  Company Number: JP-PFIZER INC-2021653705

PATIENT
  Age: 6 Decade
  Sex: Female

DRUGS (2)
  1. IBRANCE [Suspect]
     Active Substance: PALBOCICLIB
     Dosage: UNK
     Dates: start: 20210521, end: 20210604
  2. FULVESTRANT. [Concomitant]
     Active Substance: FULVESTRANT

REACTIONS (4)
  - Dehydration [Unknown]
  - Blood creatinine increased [Recovering/Resolving]
  - Neutrophil count decreased [Recovering/Resolving]
  - Diarrhoea [Unknown]

NARRATIVE: CASE EVENT DATE: 202106
